FAERS Safety Report 4696433-9 (Version None)
Quarter: 2005Q2

REPORT INFORMATION
  Report Type: 
  Country: None (occurrence: None)
  Receive Date: 20050613
  Receipt Date: 20050511
  Transmission Date: 20051028
  Serious: Yes (Other)
  Sender: FDA-Public Use
  Company Number: 404568

PATIENT
  Age: 81 Year
  Sex: Female
  Weight: 40.8 kg

DRUGS (3)
  1. BONIVA [Suspect]
     Indication: OSTEOPOROSIS
     Dosage: 150 MG 1 PER MONTH ORAL
     Route: 048
     Dates: start: 20050506, end: 20050506
  2. ATENOLOL [Concomitant]
  3. ASPIRIN [Concomitant]

REACTIONS (1)
  - CHEST PAIN [None]
